FAERS Safety Report 4424848-2 (Version None)
Quarter: 2004Q3

REPORT INFORMATION
  Report Type: 
  Country: None (occurrence: None)
  Receive Date: 20040809
  Receipt Date: 20040722
  Transmission Date: 20050211
  Serious: Yes (Hospitalization)
  Sender: FDA-Public Use
  Company Number: 2001-DE-P0032

PATIENT
  Age: 17 Year
  Sex: Male

DRUGS (1)
  1. MEXILETINE (MEXILETINE HYDROCHLORIDE) (NR) (MEXILETINE-HCL) [Suspect]

REACTIONS (15)
  - AFFECTIVE DISORDER [None]
  - AGITATION [None]
  - ALCOHOL INTERACTION [None]
  - BLOOD GLUCOSE INCREASED [None]
  - BLOOD POTASSIUM DECREASED [None]
  - DRUG ABUSER [None]
  - DRUG SCREEN POSITIVE [None]
  - DRUG TOXICITY [None]
  - HALLUCINATION [None]
  - HEART RATE INCREASED [None]
  - MAJOR DEPRESSION [None]
  - NERVOUS SYSTEM DISORDER [None]
  - STATUS EPILEPTICUS [None]
  - SUICIDAL IDEATION [None]
  - SUICIDE ATTEMPT [None]
